FAERS Safety Report 6699414-9 (Version None)
Quarter: 2010Q2

REPORT INFORMATION
  Report Type: 
  Country: None (occurrence: None)
  Receive Date: 20100427
  Receipt Date: 20100406
  Transmission Date: 20101027
  Serious: Yes (Other)
  Sender: FDA-Public Use
  Company Number: PHHY2010US25191

PATIENT
  Sex: Female
  Weight: 52 kg

DRUGS (1)
  1. FOCALIN XR [Suspect]
     Indication: ATTENTION DEFICIT/HYPERACTIVITY DISORDER
     Dosage: 10 MG, FREQUENCY REPORTED AS 1
     Dates: start: 20091007, end: 20100209

REACTIONS (6)
  - BLOOD GLUCOSE DECREASED [None]
  - BODY TEMPERATURE DECREASED [None]
  - MALAISE [None]
  - PNEUMONIA [None]
  - PYREXIA [None]
  - STREPTOCOCCAL INFECTION [None]
